FAERS Safety Report 8317228-0 (Version None)
Quarter: 2012Q2

REPORT INFORMATION
  Report Type: 
  Country: None (occurrence: None)
  Receive Date: 20120427
  Receipt Date: 20120425
  Transmission Date: 20120825
  Serious: No
  Sender: FDA-Public Use
  Company Number: PHEH2012US008849

PATIENT
  Sex: Female

DRUGS (8)
  1. TASIGNA [Suspect]
     Dosage: 400 MG, BID
     Route: 048
  2. METFORMIN HCL [Concomitant]
  3. ATIVAN [Concomitant]
  4. AMLODIPINE [Concomitant]
  5. MULTIVITAMIN [Concomitant]
  6. ZOFRAN [Concomitant]
  7. METOPROLOL TARTRATE [Concomitant]
  8. VITAMIN D [Concomitant]

REACTIONS (1)
  - NAUSEA [None]
